FAERS Safety Report 20332804 (Version 10)
Quarter: 2025Q4

REPORT INFORMATION
  Report Type: Report from Study
  Country: EU (occurrence: EU)
  Receive Date: 20220113
  Receipt Date: 20251119
  Transmission Date: 20260118
  Serious: Yes (Hospitalization, Other)
  Sender: TAKEDA
  Company Number: EU-TEVA-2020-FR-1512896

PATIENT
  Age: 15 Year
  Sex: Female

DRUGS (58)
  1. HYDROCORTISONE [Suspect]
     Active Substance: HYDROCORTISONE
     Indication: Acute myeloid leukaemia
     Dosage: UNK
  2. METHOTREXATE [Suspect]
     Active Substance: METHOTREXATE
     Indication: Acute myeloid leukaemia
     Dosage: UNK
  3. DEXAMETHASONE [Suspect]
     Active Substance: DEXAMETHASONE
     Indication: Product used for unknown indication
     Dosage: UNK
  4. ICLUSIG [Suspect]
     Active Substance: PONATINIB HYDROCHLORIDE
     Indication: Acute myeloid leukaemia
     Dosage: 45 MILLIGRAM, QD
  5. RITUXAN [Suspect]
     Active Substance: RITUXIMAB
     Indication: Bone marrow conditioning regimen
     Dosage: UNK
  6. RITUXAN [Suspect]
     Active Substance: RITUXIMAB
     Indication: Drug therapy
  7. RITUXAN [Suspect]
     Active Substance: RITUXIMAB
     Indication: Alloimmunisation
  8. RITUXIMAB [Suspect]
     Active Substance: RITUXIMAB
     Indication: Bone marrow conditioning regimen
     Dosage: UNK
  9. RITUXIMAB [Suspect]
     Active Substance: RITUXIMAB
     Indication: Alloimmunisation
  10. CYTARABINE [Suspect]
     Active Substance: CYTARABINE
     Indication: Acute myeloid leukaemia
     Dosage: UNK
  11. CYTARABINE [Suspect]
     Active Substance: CYTARABINE
     Indication: Drug therapy
     Dosage: UNK UNK, Q12H
  12. CYTARABINE [Suspect]
     Active Substance: CYTARABINE
     Dosage: UNK UNK, Q12H
  13. CYTARABINE [Suspect]
     Active Substance: CYTARABINE
     Dosage: 200 MILLIGRAM/SQ. METER
  14. CYTARABINE [Suspect]
     Active Substance: CYTARABINE
     Dosage: 200 MILLIGRAM/SQ. METER, QD
  15. CYTARABINE [Suspect]
     Active Substance: CYTARABINE
     Dosage: 3 MILLIGRAM/SQ. METER, BID
  16. DECADRON [Suspect]
     Active Substance: DEXAMETHASONE
     Indication: Acute myeloid leukaemia
     Dosage: UNK
  17. FLUDARABINE [Suspect]
     Active Substance: FLUDARABINE PHOSPHATE
     Indication: Drug therapy
     Dosage: UNK
  18. FLUDARABINE [Suspect]
     Active Substance: FLUDARABINE PHOSPHATE
     Indication: Acute myeloid leukaemia refractory
     Dosage: 30 MILLIGRAM/SQ. METER
  19. MITOXANTRONE [Suspect]
     Active Substance: MITOXANTRONE HYDROCHLORIDE
     Indication: Acute myeloid leukaemia
     Dosage: UNK
  20. MITOXANTRONE [Suspect]
     Active Substance: MITOXANTRONE HYDROCHLORIDE
     Dosage: 12 MILLIGRAM/SQ. METER
  21. GEMTUZUMAB OZOGAMICIN [Suspect]
     Active Substance: GEMTUZUMAB OZOGAMICIN
     Indication: Acute myeloid leukaemia refractory
     Dosage: UNK UNK, BID
  22. GEMTUZUMAB OZOGAMICIN [Suspect]
     Active Substance: GEMTUZUMAB OZOGAMICIN
     Dosage: 3 MILLIGRAM/SQ. METER, BID
  23. CYCLOPHOSPHAMIDE [Suspect]
     Active Substance: CYCLOPHOSPHAMIDE
     Indication: Drug therapy
     Dosage: UNK
  24. CYCLOPHOSPHAMIDE [Suspect]
     Active Substance: CYCLOPHOSPHAMIDE
     Indication: Bone marrow conditioning regimen
  25. AMSACRINE [Suspect]
     Active Substance: AMSACRINE
     Indication: Acute myeloid leukaemia
     Dosage: UNK UNK, QD
  26. AMSACRINE [Suspect]
     Active Substance: AMSACRINE
     Dosage: 100 MILLIGRAM/SQ. METER
  27. DEFITELIO [Suspect]
     Active Substance: DEFIBROTIDE SODIUM
     Indication: Prophylaxis
     Dosage: 6.25 MILLIGRAM/KILOGRAM
  28. DEFITELIO [Suspect]
     Active Substance: DEFIBROTIDE SODIUM
     Indication: Venoocclusive liver disease
     Dosage: 25 MILLIGRAM/KILOGRAM, BID
  29. DEFITELIO [Suspect]
     Active Substance: DEFIBROTIDE SODIUM
     Dosage: 6.25 MILLIGRAM/KILOGRAM, QID
     Dates: end: 20141201
  30. URSODIOL [Concomitant]
     Active Substance: URSODIOL
     Indication: Prophylaxis
     Dosage: UNK
  31. URSODIOL [Concomitant]
     Active Substance: URSODIOL
     Indication: Stem cell transplant
     Dosage: 250 MILLIGRAM
  32. URSODIOL [Concomitant]
     Active Substance: URSODIOL
     Indication: Venoocclusive liver disease
  33. FLUDARABINE PHOSPHATE [Concomitant]
     Active Substance: FLUDARABINE PHOSPHATE
     Indication: Acute myeloid leukaemia
     Dosage: UNK
  34. FLUDARABINE PHOSPHATE [Concomitant]
     Active Substance: FLUDARABINE PHOSPHATE
     Dosage: 30 MILLIGRAM/SQ. METER, QD
  35. Clofarabin alvogen [Concomitant]
     Indication: Acute myeloid leukaemia
     Dosage: UNK
  36. Clofarabin alvogen [Concomitant]
     Dosage: UNK
  37. Clofarabin alvogen [Concomitant]
     Dosage: 40 MILLIGRAM/SQ. METER, QD
  38. ONDANSETRON [Concomitant]
     Active Substance: ONDANSETRON
     Indication: Stem cell transplant
     Dosage: 8 MILLIGRAM, BID
     Dates: start: 20141110
  39. ONDANSETRON [Concomitant]
     Active Substance: ONDANSETRON
     Dosage: 16 MILLIGRAM, QD
  40. VALACYCLOVIR HYDROCHLORIDE [Concomitant]
     Active Substance: VALACYCLOVIR HYDROCHLORIDE
     Indication: Stem cell transplant
     Dosage: 500 MILLIGRAM
     Dates: start: 20141110
  41. VALACYCLOVIR HYDROCHLORIDE [Concomitant]
     Active Substance: VALACYCLOVIR HYDROCHLORIDE
     Dosage: 1000 MILLIGRAM
  42. VALACYCLOVIR HYDROCHLORIDE [Concomitant]
     Active Substance: VALACYCLOVIR HYDROCHLORIDE
     Dosage: 500 MILLIGRAM, QD
     Dates: start: 20141110
  43. METHYLPREDNISOLONE [Concomitant]
     Active Substance: METHYLPREDNISOLONE
     Indication: Stem cell transplant
     Dosage: 30 MILLIGRAM, Q12H
     Dates: start: 20141128
  44. METHYLPREDNISOLONE [Concomitant]
     Active Substance: METHYLPREDNISOLONE
     Dosage: 30 MILLIGRAM, Q12H
  45. DAUNORUBICIN [Concomitant]
     Active Substance: DAUNORUBICIN
     Indication: Acute myeloid leukaemia
     Dosage: UNK
  46. DAUNORUBICIN [Concomitant]
     Active Substance: DAUNORUBICIN
     Dosage: 60 MILLIGRAM/SQ. METER, QD
  47. FLUCONAZOLE [Concomitant]
     Active Substance: FLUCONAZOLE
     Indication: Stem cell transplant
     Dosage: 400 MILLIGRAM
     Dates: start: 20141125
  48. CYCLOSPORINE [Concomitant]
     Active Substance: CYCLOSPORINE
     Indication: Stem cell transplant
     Dosage: 60 MILLIGRAM, Q12H
     Dates: start: 20141110
  49. PANTOPRAZOLE [Concomitant]
     Active Substance: PANTOPRAZOLE
     Indication: Stem cell transplant
     Dosage: 40 MILLIGRAM, QD
     Dates: start: 20141110
  50. CELLCEPT [Concomitant]
     Active Substance: MYCOPHENOLATE MOFETIL
     Indication: Stem cell transplant
     Dosage: 1250 MILLIGRAM, Q12H
     Dates: start: 20141110
  51. CANCIDAS [Concomitant]
     Active Substance: CASPOFUNGIN ACETATE
     Indication: Stem cell transplant
     Dosage: 70 MILLIGRAM
  52. CANCIDAS [Concomitant]
     Active Substance: CASPOFUNGIN ACETATE
     Dosage: 70 MILLIGRAM, QD
     Dates: start: 20141125
  53. URSODIOL [Concomitant]
     Active Substance: URSODIOL
     Indication: Stem cell transplant
     Dosage: 250 MILLIGRAM
     Dates: start: 20141110
  54. URSODIOL [Concomitant]
     Active Substance: URSODIOL
     Indication: Venoocclusive liver disease
     Dosage: 500 MILLIGRAM
  55. URSODIOL [Concomitant]
     Active Substance: URSODIOL
     Indication: Prophylaxis
     Dosage: 500 MILLIGRAM, QD
  56. URSODIOL [Concomitant]
     Active Substance: URSODIOL
     Indication: Venoocclusive liver disease
  57. DAUNORUBICIN HYDROCHLORIDE [Concomitant]
     Active Substance: DAUNORUBICIN HYDROCHLORIDE
     Indication: Acute myeloid leukaemia
     Dosage: UNK
  58. DAUNORUBICIN HYDROCHLORIDE [Concomitant]
     Active Substance: DAUNORUBICIN HYDROCHLORIDE
     Dosage: 60 MILLIGRAM/SQ. METER, QD

REACTIONS (12)
  - Thrombocytopenia [Unknown]
  - Venoocclusive liver disease [Unknown]
  - Cerebral haemorrhage [Recovered/Resolved]
  - Myalgia [Unknown]
  - Febrile neutropenia [Unknown]
  - Drug resistance [Unknown]
  - Hypersensitivity [Recovered/Resolved]
  - Granulicatella infection [Unknown]
  - Sepsis [Unknown]
  - Toxicity to various agents [Unknown]
  - Drug ineffective [Unknown]
  - Off label use [Unknown]

NARRATIVE: CASE EVENT DATE: 20141120
